FAERS Safety Report 7599676-X (Version None)
Quarter: 2011Q3

REPORT INFORMATION
  Report Type: 
  Country: None (occurrence: None)
  Receive Date: 20110711
  Receipt Date: 20110627
  Transmission Date: 20111222
  Serious: Yes (Hospitalization, Other)
  Sender: FDA-Public Use
  Company Number: CA-ELI_LILLY_AND_COMPANY-CA201106007520

PATIENT
  Sex: Male
  Weight: 111.3 kg

DRUGS (14)
  1. ZYPREXA [Suspect]
     Dosage: 10 MG, EACH EVENING
  2. ZYPREXA [Suspect]
     Indication: BIPOLAR DISORDER
     Dosage: 5 MG, EACH EVENING
  3. PAXIL [Concomitant]
  4. SEROQUEL [Concomitant]
  5. ZYPREXA [Suspect]
     Dosage: 20 MG, EACH EVENING
  6. VENLAFAXINE [Concomitant]
  7. HYDROMORPHONE HCL [Concomitant]
  8. RISPERIDONE [Concomitant]
  9. ESCITALOPRAM [Concomitant]
  10. ZYPREXA [Suspect]
     Dosage: 15 MG, EACH EVENING
  11. CELEXA [Concomitant]
  12. PROZAC [Concomitant]
  13. DIVALPROEX SODIUM [Concomitant]
  14. WELLBUTRIN [Concomitant]

REACTIONS (14)
  - CATARACT [None]
  - DIABETIC NEUROPATHY [None]
  - DIABETES MELLITUS [None]
  - HYPERTENSION [None]
  - SLEEP APNOEA SYNDROME [None]
  - WEIGHT INCREASED [None]
  - CARPAL TUNNEL SYNDROME [None]
  - URINARY TRACT INFECTION [None]
  - MACULAR DEGENERATION [None]
  - HAEMATOCHEZIA [None]
  - LIPIDS INCREASED [None]
  - SEROTONIN SYNDROME [None]
  - SYNCOPE [None]
  - ERECTILE DYSFUNCTION [None]
